FAERS Safety Report 7764257-1 (Version None)
Quarter: 2011Q3

REPORT INFORMATION
  Report Type: 
  Country: None (occurrence: None)
  Receive Date: 20110919
  Receipt Date: 20110912
  Transmission Date: 20111222
  Serious: Yes (Hospitalization)
  Sender: FDA-Public Use
  Company Number: 1040391

PATIENT
  Age: 52 Year
  Sex: Female
  Weight: 71 kg

DRUGS (1)
  1. CARBOPLATIN [Suspect]
     Indication: PRODUCT USED FOR UNKNOWN INDICATION
     Dosage: 175.0MG/M2, 1 EVERY 3 WEEKS, INTRAVENOUS
     Route: 042

REACTIONS (4)
  - VOMITING [None]
  - DYSPNOEA [None]
  - NAUSEA [None]
  - FLUSHING [None]
